FAERS Safety Report 22345965 (Version 1)
Quarter: 2023Q2

REPORT INFORMATION
  Report Type: Spontaneous
  Country: CA (occurrence: CA)
  Receive Date: 20230519
  Receipt Date: 20230519
  Transmission Date: 20230722
  Serious: Yes (Hospitalization)
  Sender: FDA-Public Use
  Company Number: CA-FreseniusKabi-FK202306720

PATIENT
  Age: 3 Year
  Sex: Female

DRUGS (5)
  1. MORPHINE [Suspect]
     Active Substance: MORPHINE
     Indication: Anaesthesia
     Dosage: FREQUENCY- ONCE?FORM OF ADMIN.- NOT SPECIFIED
     Route: 048
  2. MORPHINE [Suspect]
     Active Substance: MORPHINE
     Dosage: FREQUENCY- ONCE?FORM OF ADMIN.- NOT SPECIFIED
     Route: 042
  3. ACETAMINOPHEN [Concomitant]
     Active Substance: ACETAMINOPHEN
     Indication: Product used for unknown indication
     Dosage: FORM OF ADMIN.- NOT SPECIFIED
  4. CIPROFLOXACIN HYDROCHLORIDE/DEXAMETHASONE [Concomitant]
     Indication: Product used for unknown indication
  5. DIMENHYDRINATE [Concomitant]
     Active Substance: DIMENHYDRINATE
     Indication: Product used for unknown indication
     Dosage: FORM OF ADMIN.- NOT SPECIFIED

REACTIONS (3)
  - Somnolence [Recovered/Resolved]
  - Oxygen saturation decreased [Recovered/Resolved]
  - Tachycardia [Recovered/Resolved]
